FAERS Safety Report 5841470-1 (Version None)
Quarter: 2008Q3

REPORT INFORMATION
  Report Type: 
  Country: None (occurrence: None)
  Receive Date: 20080812
  Receipt Date: 20080807
  Transmission Date: 20090109
  Serious: Yes (Life-Threatening, Hospitalization)
  Sender: FDA-Public Use
  Company Number: NL-JNJFOC-20080802173

PATIENT
  Sex: Female
  Weight: 125 kg

DRUGS (4)
  1. RISPERDAL [Suspect]
     Indication: BIPOLAR DISORDER
     Route: 048
  2. CARBAMAZEPINE [Concomitant]
     Route: 048
  3. DEPAKENE [Concomitant]
     Route: 048
  4. VALPROIC ACID [Concomitant]
     Route: 065

REACTIONS (1)
  - VENTRICULAR TACHYCARDIA [None]
